FAERS Safety Report 5932063-6 (Version None)
Quarter: 2008Q4

REPORT INFORMATION
  Report Type: 
  Country: None (occurrence: None)
  Receive Date: 20081027
  Receipt Date: 20081017
  Transmission Date: 20090506
  Serious: Yes (Hospitalization)
  Sender: FDA-Public Use
  Company Number: JP-AMGEN-US315389

PATIENT
  Sex: Male

DRUGS (2)
  1. ENBREL [Suspect]
     Indication: RHEUMATOID ARTHRITIS
     Dosage: UNSPECIFIED DOSE ONCE WEEKLY
     Route: 058
  2. ENBREL [Suspect]
     Dosage: PREVIOUSLY ON LYOPHILIZED UNSPECIFIED DOSE
     Route: 058

REACTIONS (7)
  - HERPES VIRUS INFECTION [None]
  - INJECTION SITE ERYTHEMA [None]
  - INJECTION SITE PAIN [None]
  - INJECTION SITE RASH [None]
  - INJECTION SITE REACTION [None]
  - NONSPECIFIC REACTION [None]
  - RASH [None]
